FAERS Safety Report 8769955 (Version 1)
Quarter: 2012Q4

REPORT INFORMATION
  Report Type: 
  Country: ZA (occurrence: ZA)
  Receive Date: 20120906
  Receipt Date: 20120906
  Transmission Date: 20130627
  Serious: Yes (Hospitalization)
  Sender: FDA-Public Use
  Company Number: ZA-ELI_LILLY_AND_COMPANY-ZA201208008395

PATIENT
  Age: 60 Year
  Sex: Female

DRUGS (9)
  1. HUMULIN NPH [Suspect]
     Indication: DIABETES MELLITUS
     Dosage: 60 u, each evening
     Route: 058
  2. HUMALOG LISPRO [Suspect]
     Indication: DIABETES MELLITUS
     Dosage: 22 u, tid
  3. GLUCOPHAGE [Concomitant]
     Indication: DIABETES MELLITUS
     Dosage: 1000 mg, bid
     Route: 048
  4. DOLOROL FORTE [Concomitant]
     Indication: PAIN
     Dosage: 2 DF, prn
     Route: 048
     Dates: start: 201208
  5. TENORMIN [Concomitant]
     Indication: BLOOD PRESSURE ABNORMAL
     Dosage: 1 DF, bid
     Route: 048
  6. EPILAM [Concomitant]
     Indication: EPILEPSY
     Dosage: 1 DF, bid
     Route: 048
  7. ECOTRIN [Concomitant]
     Dosage: 1 DF, qd
     Route: 048
  8. SIMVASTATIN [Concomitant]
     Indication: BLOOD CHOLESTEROL ABNORMAL
     Dosage: 40 mg, each evening
     Route: 048
  9. CLEXANE [Concomitant]
     Dosage: 60 mg, qd
     Route: 058
     Dates: start: 201208

REACTIONS (1)
  - Vascular graft [Recovered/Resolved]
